FAERS Safety Report 20431746 (Version 1)
Quarter: 2022Q1

REPORT INFORMATION
  Report Type: Report from Study
  Country: FR (occurrence: FR)
  Receive Date: 20220204
  Receipt Date: 20220204
  Transmission Date: 20220423
  Serious: Yes (Hospitalization)
  Sender: FDA-Public Use
  Company Number: FR-SERVIER-S22000976

PATIENT

DRUGS (10)
  1. PEGASPARGASE [Suspect]
     Active Substance: PEGASPARGASE
     Indication: Acute lymphocytic leukaemia
     Dosage: 652 IU, ON D4
     Route: 042
     Dates: start: 20200903
  2. TN UNSPECIFIED [Concomitant]
     Indication: Acute lymphocytic leukaemia
     Dosage: 2.5 MG, D1 TO D15
     Route: 048
     Dates: start: 20200831
  3. TN UNSPECIFIED [Concomitant]
     Indication: Acute lymphocytic leukaemia
     Dosage: 0.8 MG, D1, D8
     Route: 042
     Dates: start: 20200831
  4. TN UNSPECIFIED [Concomitant]
     Indication: Acute lymphocytic leukaemia
     Dosage: 13.2 MG, D1, D8
     Route: 042
     Dates: start: 20200831
  5. TN UNSPECIFIED [Concomitant]
     Indication: Acute lymphocytic leukaemia
     Dosage: 10 MG, ON D4
     Route: 037
     Dates: start: 20200903
  6. TN UNSPECIFIED [Concomitant]
     Indication: Abdominal pain
     Dosage: 100 MG
     Route: 042
     Dates: start: 20200913
  7. TN UNSPECIFIED [Concomitant]
     Indication: Febrile bone marrow aplasia
     Dosage: 3.9 G
     Route: 042
     Dates: start: 20200913, end: 20200917
  8. TN UNSPECIFIED [Concomitant]
     Indication: Constipation
     Dosage: UNK
     Route: 048
     Dates: start: 20200914
  9. TN UNSPECIFIED [Concomitant]
     Indication: Febrile bone marrow aplasia
     Dosage: 480 MG
     Route: 042
     Dates: start: 20200915, end: 20200917
  10. TN UNSPECIFIED [Concomitant]
     Indication: Hypoalbuminaemia
     Dosage: 15 G
     Route: 042
     Dates: start: 20200915, end: 20200919

REACTIONS (1)
  - Pseudomonal sepsis [Recovered/Resolved]

NARRATIVE: CASE EVENT DATE: 20200913
